FAERS Safety Report 15099355 (Version 1)
Quarter: 2018Q2

REPORT INFORMATION
  Report Type: Spontaneous
  Country: US (occurrence: US)
  Receive Date: 20180611
  Receipt Date: 20180611
  Transmission Date: 20180711
  Serious: Yes (Disabling)
  Sender: FDA-Public Use
  Company Number: None

PATIENT
  Age: 73 Year
  Sex: Female
  Weight: 54.45 kg

DRUGS (10)
  1. VITAMIN D3 [Concomitant]
     Active Substance: CHOLECALCIFEROL
  2. TUSSIN DM [Concomitant]
     Active Substance: DEXTROMETHORPHAN HYDROBROMIDE\GUAIFENESIN
  3. METHYL PREDNISONE 4MG GREENSTONE LLC [Suspect]
     Active Substance: METHYLPREDNISOLONE
     Indication: RHEUMATOID ARTHRITIS
     Dosage: ?          QUANTITY:1 TABLET(S);?
     Route: 048
  4. MEDROL [Concomitant]
     Active Substance: METHYLPREDNISOLONE
  5. LORATADINE. [Concomitant]
     Active Substance: LORATADINE
  6. ACETAMINOPHEN. [Concomitant]
     Active Substance: ACETAMINOPHEN
  7. HYDROXYCHLOROQUINE [Concomitant]
     Active Substance: HYDROXYCHLOROQUINE
  8. FLUTICASONE. [Concomitant]
     Active Substance: FLUTICASONE
  9. MUSCLE RUB [Concomitant]
     Active Substance: MENTHOL\METHYL SALICYLATE
  10. LISINOPRIL. [Concomitant]
     Active Substance: LISINOPRIL

REACTIONS (3)
  - Osteoporosis [None]
  - Lung disorder [None]
  - Cardiac disorder [None]

NARRATIVE: CASE EVENT DATE: 19970201
